FAERS Safety Report 12743536 (Version 1)
Quarter: 2016Q3

REPORT INFORMATION
  Report Type: Spontaneous
  Country: US (occurrence: US)
  Receive Date: 20160914
  Receipt Date: 20160914
  Transmission Date: 20161109
  Serious: Yes (Other)
  Sender: FDA-Public Use
  Company Number: US-BAYER-2016-175765

PATIENT
  Age: 48 Year
  Sex: Female

DRUGS (1)
  1. BEYAZ [Suspect]
     Active Substance: DROSPIRENONE\ETHINYL ESTRADIOL\LEVOMEFOLATE CALCIUM
     Indication: PREMENSTRUAL DYSPHORIC DISORDER
     Dosage: UNK, QD
     Route: 048

REACTIONS (5)
  - Product use issue [None]
  - Nausea [Not Recovered/Not Resolved]
  - Product use issue [None]
  - Emotional disorder [Not Recovered/Not Resolved]
  - Suicidal ideation [Not Recovered/Not Resolved]

NARRATIVE: CASE EVENT DATE: 201608
